FAERS Safety Report 5556730-1 (Version None)
Quarter: 2007Q4

REPORT INFORMATION
  Report Type: 
  Country: None (occurrence: None)
  Receive Date: 20071211
  Receipt Date: 20071128
  Transmission Date: 20080405
  Serious: Yes (Other)
  Sender: FDA-Public Use
  Company Number: B0126762A

PATIENT
  Age: 22 Year
  Sex: Female

DRUGS (1)
  1. VENTOLIN HFA [Suspect]
     Dosage: TOPICAL
     Route: 061

REACTIONS (5)
  - BLISTER [None]
  - INCORRECT ROUTE OF DRUG ADMINISTRATION [None]
  - INTENTIONAL SELF-INJURY [None]
  - THERMAL BURN [None]
  - WOUND [None]
